FAERS Safety Report 15793743 (Version 1)
Quarter: 2019Q1

REPORT INFORMATION
  Report Type: Spontaneous
  Country: US (occurrence: US)
  Receive Date: 20190105
  Receipt Date: 20190105
  Transmission Date: 20190417
  Serious: Yes (Disabling)
  Sender: FDA-Public Use
  Company Number: None

PATIENT
  Age: 17 Year
  Sex: Female
  Weight: 67.5 kg

DRUGS (10)
  1. VIORELE [Suspect]
     Active Substance: DESOGESTREL\ETHINYL ESTRADIOL
     Indication: ACNE
     Route: 048
     Dates: start: 20170721, end: 20181201
  2. FISH OIL [Concomitant]
     Active Substance: FISH OIL
  3. DESVENLAFAXINE. [Concomitant]
     Active Substance: DESVENLAFAXINE
  4. PROBIOTIC [Concomitant]
     Active Substance: PROBIOTICS NOS
  5. MULTIVITAMIN [Concomitant]
     Active Substance: VITAMINS
  6. VITAMIN D [Concomitant]
     Active Substance: CHOLECALCIFEROL
  7. MELATONIN [Concomitant]
     Active Substance: MELATONIN
  8. GABAPENTIN. [Concomitant]
     Active Substance: GABAPENTIN
  9. VITAMIN B-6 [Concomitant]
     Active Substance: PYRIDOXINE
  10. LEVOTHYROXINE. [Concomitant]
     Active Substance: LEVOTHYROXINE

REACTIONS (4)
  - Off label use [None]
  - Loss of personal independence in daily activities [None]
  - Anxiety [None]
  - Depression [None]

NARRATIVE: CASE EVENT DATE: 20181201
